FAERS Safety Report 7431772-X (Version None)
Quarter: 2011Q1

REPORT INFORMATION
  Report Type: 
  Country: None (occurrence: None)
  Receive Date: 20110302
  Receipt Date: 20101025
  Transmission Date: 20110831
  Serious: No
  Sender: FDA-Public Use
  Company Number: 021217

PATIENT
  Sex: Female
  Weight: 52.2 kg

DRUGS (8)
  1. PREDNISONE [Concomitant]
  2. TRI-SPRINTEC [Concomitant]
  3. PRENATAL VITAMINS [Concomitant]
  4. CIMZIA [Suspect]
     Indication: CROHN'S DISEASE
     Dosage: 400 MG 1X/2 WEEKS SUBCUTANEOUS
     Route: 058
     Dates: start: 20101001
  5. CIPRO [Concomitant]
  6. LORTAB [Concomitant]
  7. BENTYL [Concomitant]
  8. MESALAMINE [Concomitant]

REACTIONS (5)
  - CYSTITIS [None]
  - DYSURIA [None]
  - ABDOMINAL PAIN LOWER [None]
  - DIARRHOEA [None]
  - HAEMORRHOIDS [None]
